FAERS Safety Report 20905336 (Version 2)
Quarter: 2022Q2

REPORT INFORMATION
  Report Type: Spontaneous
  Country: US (occurrence: US)
  Receive Date: 20220602
  Receipt Date: 20220620
  Transmission Date: 20220721
  Serious: No
  Sender: FDA-Public Use
  Company Number: US-BRISTOL-MYERS SQUIBB COMPANY-2022-036071

PATIENT
  Age: 76 Year
  Sex: Female

DRUGS (1)
  1. POMALYST [Suspect]
     Active Substance: POMALIDOMIDE
     Indication: Plasma cell myeloma
     Dosage: 4 MILLIGRAM DAILY
     Route: 048
     Dates: start: 202104

REACTIONS (3)
  - Peripheral swelling [Unknown]
  - Gastrointestinal disorder [Unknown]
  - Constipation [Unknown]

NARRATIVE: CASE EVENT DATE: 20220501
